FAERS Safety Report 5987601-4 (Version None)
Quarter: 2008Q4

REPORT INFORMATION
  Report Type: 
  Country: None (occurrence: None)
  Receive Date: 20081209
  Receipt Date: 20081006
  Transmission Date: 20090506
  Serious: Yes (Hospitalization, Disabling)
  Sender: FDA-Public Use
  Company Number: JP-ASTRAZENECA-2008AP09192

PATIENT
  Age: 78 Year
  Sex: Male

DRUGS (1)
  1. SEROQUEL [Suspect]
     Route: 048
     Dates: start: 20080315

REACTIONS (3)
  - FALL [None]
  - GAIT DISTURBANCE [None]
  - SUBARACHNOID HAEMORRHAGE [None]
